FAERS Safety Report 12330301 (Version 1)
Quarter: 2016Q2

REPORT INFORMATION
  Report Type: Spontaneous
  Country: US (occurrence: US)
  Receive Date: 20160504
  Receipt Date: 20160504
  Transmission Date: 20160815
  Serious: No
  Sender: FDA-Public Use
  Company Number: US-GLENMARK PHARMACEUTICALS INC, USA.-2016GMK022022

PATIENT
  Age: 42 Year
  Sex: Male

DRUGS (5)
  1. SERTRALINE [Suspect]
     Active Substance: SERTRALINE HYDROCHLORIDE
     Indication: SEIZURE
     Dosage: 150 MG, EVERY MORNING
  2. TOPIRAMATE. [Suspect]
     Active Substance: TOPIRAMATE
     Indication: SEIZURE
     Dosage: 75 MG, BID
  3. LEVOTHYROXINE NA [Suspect]
     Active Substance: LEVOTHYROXINE SODIUM
     Indication: SEIZURE
     Dosage: 0.112 MG, QD
  4. CARBAMAZEPINE. [Suspect]
     Active Substance: CARBAMAZEPINE
     Indication: SEIZURE
     Dosage: 400 MG, BID
  5. METOPROLOL TARTRATE. [Suspect]
     Active Substance: METOPROLOL TARTRATE
     Indication: SEIZURE
     Dosage: 50 MG, BID

REACTIONS (2)
  - Apathy [Recovered/Resolved]
  - Sedation [Recovered/Resolved]
